FAERS Safety Report 17676188 (Version 1)
Quarter: 2020Q2

REPORT INFORMATION
  Report Type: Spontaneous
  Country: FR (occurrence: FR)
  Receive Date: 20200416
  Receipt Date: 20200416
  Transmission Date: 20200714
  Serious: Yes (Other)
  Sender: FDA-Public Use
  Company Number: FR-MYLANLABS-2020M1038560

PATIENT
  Age: 54 Year
  Sex: Female
  Weight: 63 kg

DRUGS (10)
  1. PLAQUENIL                          /00072602/ [Suspect]
     Active Substance: HYDROXYCHLOROQUINE DIPHOSPHATE
     Indication: ANKYLOSING SPONDYLITIS
     Dosage: 1 DOSAGE FORM, QD
     Route: 048
     Dates: end: 20200225
  2. IZALGI [Concomitant]
     Active Substance: ACETAMINOPHEN\OPIUM
  3. CLOPIDOGREL [Concomitant]
     Active Substance: CLOPIDOGREL BISULFATE
  4. CORTANCYL [Suspect]
     Active Substance: PREDNISONE
     Indication: SARCOIDOSIS
     Dosage: UNK
     Route: 048
     Dates: start: 20191007
  5. PANTOPRAZOLE [Concomitant]
     Active Substance: PANTOPRAZOLE
  6. LEVOTHYROX [Concomitant]
     Active Substance: LEVOTHYROXINE
  7. ATORVASTATINE                      /01326101/ [Concomitant]
     Active Substance: ATORVASTATIN
  8. PROCORALAN [Concomitant]
     Active Substance: IVABRADINE
     Dosage: UNK
  9. RISEDRONATE [Suspect]
     Active Substance: RISEDRONATE SODIUM
     Indication: PROPHYLAXIS
     Dosage: 35 MILLIGRAM, TOTAL
     Route: 048
     Dates: start: 201912
  10. DIFFU K [Concomitant]
     Active Substance: POTASSIUM CHLORIDE

REACTIONS (3)
  - Headache [Not Recovered/Not Resolved]
  - Palpitations [Not Recovered/Not Resolved]
  - Erythema [Recovered/Resolved]

NARRATIVE: CASE EVENT DATE: 201912
